FAERS Safety Report 21451240 (Version 1)
Quarter: 2022Q4

REPORT INFORMATION
  Report Type: Spontaneous
  Country: US (occurrence: US)
  Receive Date: 20221013
  Receipt Date: 20221013
  Transmission Date: 20230112
  Serious: Yes (Hospitalization, Other)
  Sender: FDA-Public Use
  Company Number: US-BRISTOL-MYERS SQUIBB COMPANY-2022-118357

PATIENT
  Age: 97 Year
  Sex: Male
  Weight: 83.007 kg

DRUGS (1)
  1. REVLIMID [Suspect]
     Active Substance: LENALIDOMIDE
     Indication: Myelodysplastic syndrome
     Dosage: DAILY FOR 14 DAYS
     Route: 048
     Dates: start: 20210401

REACTIONS (2)
  - Pneumonia [Unknown]
  - Off label use [Unknown]
